FAERS Safety Report 7493918-7 (Version None)
Quarter: 2011Q2

REPORT INFORMATION
  Report Type: 
  Country: None (occurrence: None)
  Receive Date: 20110519
  Receipt Date: 20110519
  Transmission Date: 20111010
  Serious: Yes (Other)
  Sender: FDA-Public Use
  Company Number: None

PATIENT
  Age: 57 Year
  Sex: Female
  Weight: 58.9676 kg

DRUGS (1)
  1. ZICAM TABLET [Suspect]
     Indication: NASOPHARYNGITIS
     Dosage: 1 BUCCAL
     Route: 002
     Dates: start: 20110115, end: 20110201

REACTIONS (2)
  - DEPRESSED MOOD [None]
  - ANOSMIA [None]
